FAERS Safety Report 6518283-0 (Version None)
Quarter: 2009Q4

REPORT INFORMATION
  Report Type: 
  Country: None (occurrence: None)
  Receive Date: 20091223
  Receipt Date: 20091223
  Transmission Date: 20100525
  Serious: No
  Sender: FDA-Public Use
  Company Number: None

PATIENT
  Age: 73 Year
  Sex: Female
  Weight: 74.3899 kg

DRUGS (1)
  1. AMOXICILLIN [Suspect]
     Indication: SINUSITIS
     Dosage: 875 MG. 2 X DAILY (10 DAYS)
     Dates: start: 20091119, end: 20091129

REACTIONS (4)
  - ASTHENIA [None]
  - EYE IRRITATION [None]
  - MUSCULAR WEAKNESS [None]
  - SWELLING FACE [None]
